FAERS Safety Report 12095670 (Version 1)
Quarter: 2016Q1

REPORT INFORMATION
  Report Type: Spontaneous
  Country: US (occurrence: US)
  Receive Date: 20160219
  Receipt Date: 20160219
  Transmission Date: 20160526
  Serious: No
  Sender: FDA-Public Use
  Company Number: US-ALLERGAN-1509544US

PATIENT
  Age: 25 Year
  Sex: Male

DRUGS (3)
  1. TAZORAC [Suspect]
     Active Substance: TAZAROTENE
     Indication: ACNE
     Dosage: UNK
     Route: 061
     Dates: start: 2010
  2. PROACTIV SOLUTION RENEWING CLEANSER [Concomitant]
     Active Substance: BENZOYL PEROXIDE
     Indication: ACNE
     Route: 061
  3. ZYRTEC [Concomitant]
     Active Substance: CETIRIZINE HYDROCHLORIDE
     Indication: SEASONAL ALLERGY
     Dosage: 1 TABLET, QD
     Route: 048

REACTIONS (5)
  - Photosensitivity reaction [Not Recovered/Not Resolved]
  - Myalgia [Not Recovered/Not Resolved]
  - Food allergy [Not Recovered/Not Resolved]
  - Arthralgia [Not Recovered/Not Resolved]
  - Splenomegaly [Recovered/Resolved]
